FAERS Safety Report 6528305-9 (Version None)
Quarter: 2010Q1

REPORT INFORMATION
  Report Type: 
  Country: None (occurrence: None)
  Receive Date: 20100106
  Receipt Date: 20091228
  Transmission Date: 20100710
  Serious: Yes (Hospitalization, Other)
  Sender: FDA-Public Use
  Company Number: PHHY2009FR59877

PATIENT
  Sex: Male

DRUGS (8)
  1. ESIDRIX [Suspect]
     Dosage: 25 MG, QD
     Route: 048
     Dates: start: 20090701
  2. LASILIX [Suspect]
     Dosage: 20 MG, QD
     Dates: start: 20020101
  3. DIAMOX SRC [Suspect]
     Dosage: 250 MG, QD
     Dates: start: 20090701
  4. ATENOLOL [Concomitant]
     Dosage: UNK
  5. ESOMEPRAZOLE SODIUM (NEXIUM) [Concomitant]
     Dosage: 20 MG
  6. PREVISCAN [Concomitant]
     Dosage: 20 MG, QD
     Dates: start: 20020101
  7. TAHOR [Concomitant]
     Dosage: 10 MG, QD
     Dates: start: 20020101
  8. APROVEL [Concomitant]
     Dosage: 75 MG, QD
     Dates: start: 20090701

REACTIONS (4)
  - LICHENOID KERATOSIS [None]
  - PRURITUS [None]
  - RASH [None]
  - STOMATITIS [None]
